FAERS Safety Report 8099350-X (Version None)
Quarter: 2012Q1

REPORT INFORMATION
  Report Type: 
  Country: None (occurrence: None)
  Receive Date: 20120129
  Receipt Date: 20111018
  Transmission Date: 20120608
  Serious: No
  Sender: FDA-Public Use
  Company Number: US-ABBOTT-11P-163-0866787-00

PATIENT
  Sex: Female
  Weight: 61.29 kg

DRUGS (12)
  1. OXYBUTRIN [Concomitant]
     Indication: URINARY INCONTINENCE
  2. HUMIRA [Suspect]
     Indication: PSORIATIC ARTHROPATHY
     Dates: start: 20110601, end: 20110701
  3. ESTRADIOL [Concomitant]
     Indication: HORMONE REPLACEMENT THERAPY
  4. HUMIRA [Suspect]
     Dates: start: 20110701, end: 20110801
  5. HYDROCHLOROTHIAZIDE [Concomitant]
     Indication: HYPERTENSION
  6. CYCLOBENZAPRINE [Concomitant]
     Indication: BACK PAIN
  7. LISINOPRIL [Concomitant]
     Indication: HYPERTENSION
  8. GABAPENTIN [Concomitant]
     Indication: PSORIATIC ARTHROPATHY
  9. LIPITOR [Concomitant]
     Indication: HYPERLIPIDAEMIA
  10. PAXIL [Concomitant]
     Indication: ANXIETY
  11. LEVOTHYROXINE SODIUM [Concomitant]
     Indication: HYPOTHYROIDISM
  12. METFORMIN HCL [Concomitant]
     Indication: DIABETES MELLITUS

REACTIONS (1)
  - DRUG INEFFECTIVE [None]
